FAERS Safety Report 10606457 (Version 1)
Quarter: 2014Q4

REPORT INFORMATION
  Report Type: Spontaneous
  Country: US (occurrence: None)
  Receive Date: 20141124
  Receipt Date: 20141124
  Transmission Date: 20150529
  Serious: Yes (Hospitalization)
  Sender: FDA-Public Use
  Company Number: None

PATIENT
  Age: 68 Year
  Sex: Male
  Weight: 101.3 kg

DRUGS (16)
  1. OMEPRAZOLE. [Concomitant]
     Active Substance: OMEPRAZOLE
  2. HYTRIN [Concomitant]
     Active Substance: TERAZOSIN HYDROCHLORIDE
  3. PROSCAR [Concomitant]
     Active Substance: FINASTERIDE
  4. METFORMIN [Concomitant]
     Active Substance: METFORMIN HYDROCHLORIDE
  5. ASA [Concomitant]
     Active Substance: ASPIRIN
  6. DIAZEPAM. [Concomitant]
     Active Substance: DIAZEPAM
  7. ATENOLOL-CHLORTHALIDONE [Concomitant]
  8. PERCOCET [Concomitant]
     Active Substance: ACETAMINOPHEN\OXYCODONE HYDROCHLORIDE
  9. AMBIEN CR [Concomitant]
     Active Substance: ZOLPIDEM TARTRATE
  10. GLIPIZIDE. [Concomitant]
     Active Substance: GLIPIZIDE
  11. LISINOPRIL. [Concomitant]
     Active Substance: LISINOPRIL
  12. NOVOLOG [Concomitant]
     Active Substance: INSULIN ASPART
  13. MVI [Concomitant]
     Active Substance: VITAMINS
  14. INDOCIN [Suspect]
     Active Substance: INDOMETHACIN\INDOMETHACIN SODIUM
     Indication: GOUT
  15. LASIX [Concomitant]
     Active Substance: FUROSEMIDE
  16. LANTUS [Concomitant]
     Active Substance: INSULIN GLARGINE

REACTIONS (4)
  - Acute kidney injury [None]
  - Pneumonia [None]
  - Renal tubular acidosis [None]
  - Drug eruption [None]

NARRATIVE: CASE EVENT DATE: 20140722
